FAERS Safety Report 25386972 (Version 1)
Quarter: 2025Q2

REPORT INFORMATION
  Report Type: Spontaneous
  Country: CN (occurrence: CN)
  Receive Date: 20250602
  Receipt Date: 20250602
  Transmission Date: 20250716
  Serious: Yes (Hospitalization)
  Sender: PURDUE
  Company Number: CN-NAPPMUNDI-GBR-2025-0125984

PATIENT
  Age: 74 Year
  Sex: Female
  Weight: 36.7 kg

DRUGS (3)
  1. OXYCONTIN [Suspect]
     Active Substance: OXYCODONE HYDROCHLORIDE
     Indication: Pulmonary mass
     Dosage: 10 MILLIGRAM, Q12H
     Route: 048
     Dates: end: 20250521
  2. OXYCONTIN [Suspect]
     Active Substance: OXYCODONE HYDROCHLORIDE
     Indication: Pleural effusion
     Dosage: 20 MILLIGRAM, BID
     Route: 048
     Dates: start: 20250522, end: 20250525
  3. OXYCONTIN [Suspect]
     Active Substance: OXYCODONE HYDROCHLORIDE
     Indication: Pain

REACTIONS (2)
  - Abdominal distension [Recovering/Resolving]
  - Constipation [Recovering/Resolving]
